FAERS Safety Report 23681961 (Version 3)
Quarter: 2024Q2

REPORT INFORMATION
  Report Type: Report from Study
  Country: US (occurrence: US)
  Receive Date: 20240328
  Receipt Date: 20240424
  Transmission Date: 20240716
  Serious: Yes (Hospitalization, Other)
  Sender: FDA-Public Use
  Company Number: US-002147023-NVSC2024US062982

PATIENT
  Sex: Female

DRUGS (2)
  1. PIQRAY [Suspect]
     Active Substance: ALPELISIB
     Indication: Breast cancer
     Dosage: 300 MG, QD
     Route: 048
     Dates: start: 20240305
  2. PIQRAY [Suspect]
     Active Substance: ALPELISIB
     Dosage: 300 MG, QD
     Route: 065
     Dates: start: 20240325

REACTIONS (14)
  - Diabetes mellitus [Unknown]
  - Hyperglycaemia [Unknown]
  - Dry mouth [Unknown]
  - Thirst [Unknown]
  - Polyuria [Unknown]
  - Vision blurred [Unknown]
  - Frustration tolerance decreased [Unknown]
  - Back pain [Unknown]
  - Fear [Unknown]
  - Malaise [Unknown]
  - Illness [Unknown]
  - Hypertension [Unknown]
  - Diarrhoea [Unknown]
  - Pruritus [Unknown]
